FAERS Safety Report 12280400 (Version 8)
Quarter: 2021Q3

REPORT INFORMATION
  Report Type: Other
  Country: CA (occurrence: CA)
  Receive Date: 20160419
  Receipt Date: 20210827
  Transmission Date: 20211014
  Serious: Yes (Other)
  Sender: FDA-Public Use
  Company Number: CA-ROCHE-1509238

PATIENT
  Age: 57 Year
  Sex: Female

DRUGS (17)
  1. ACTEMRA [Suspect]
     Active Substance: TOCILIZUMAB
     Indication: RHEUMATOID ARTHRITIS
     Route: 042
     Dates: start: 20130517
  2. MODERNA COVID?19 VACCINE [Suspect]
     Active Substance: CX-024414
     Indication: PRODUCT USED FOR UNKNOWN INDICATION
     Route: 065
  3. PREDNISONE. [Concomitant]
     Active Substance: PREDNISONE
  4. OMEPRAZOLE. [Concomitant]
     Active Substance: OMEPRAZOLE
  5. CLONAZEPAM. [Concomitant]
     Active Substance: CLONAZEPAM
  6. ACTEMRA [Suspect]
     Active Substance: TOCILIZUMAB
     Route: 042
  7. ACTEMRA [Suspect]
     Active Substance: TOCILIZUMAB
     Indication: RHEUMATOID ARTHRITIS
     Route: 058
     Dates: start: 20190607
  8. ACTEMRA [Suspect]
     Active Substance: TOCILIZUMAB
     Route: 042
     Dates: start: 20150309
  9. NAPROSYN [Concomitant]
     Active Substance: NAPROXEN
     Route: 065
  10. ALENDRONATE [Concomitant]
     Active Substance: ALENDRONATE SODIUM
  11. ACTEMRA [Suspect]
     Active Substance: TOCILIZUMAB
     Route: 042
     Dates: start: 20160617
  12. NORVASC [Concomitant]
     Active Substance: AMLODIPINE BESYLATE
  13. ERDOSTEINE [Concomitant]
     Active Substance: ERDOSTEINE
  14. COUMADIN [Concomitant]
     Active Substance: WARFARIN SODIUM
  15. COVERSYL [Concomitant]
     Active Substance: PERINDOPRIL
  16. ACTEMRA [Suspect]
     Active Substance: TOCILIZUMAB
     Route: 042
     Dates: start: 20150515
  17. FLEXERIL [Concomitant]
     Active Substance: CYCLOBENZAPRINE HYDROCHLORIDE

REACTIONS (16)
  - Iodine allergy [Unknown]
  - Sensory disturbance [Unknown]
  - Synovitis [Unknown]
  - Arthralgia [Unknown]
  - Food allergy [Unknown]
  - Oral disorder [Recovering/Resolving]
  - Pruritus [Unknown]
  - Oedema peripheral [Unknown]
  - Back pain [Not Recovered/Not Resolved]
  - Seasonal allergy [Unknown]
  - Depressive symptom [Recovering/Resolving]
  - Nodule [Not Recovered/Not Resolved]
  - Arthralgia [Unknown]
  - Headache [Recovering/Resolving]
  - Musculoskeletal stiffness [Unknown]
  - Musculoskeletal stiffness [Not Recovered/Not Resolved]

NARRATIVE: CASE EVENT DATE: 201501
